FAERS Safety Report 5091053-9 (Version None)
Quarter: 2006Q3

REPORT INFORMATION
  Report Type: 
  Country: None (occurrence: None)
  Receive Date: 20060829
  Receipt Date: 20060420
  Transmission Date: 20061208
  Serious: No
  Sender: FDA-Public Use
  Company Number: US-GLAXOSMITHKLINE-A0602650A

PATIENT
  Age: 35 Year
  Sex: Female

DRUGS (3)
  1. ACYCLOVIR [Suspect]
     Dosage: 400MG FIVE TIMES PER DAY
     Route: 048
     Dates: start: 20060415
  2. CLINDAMYCIN [Suspect]
     Indication: TOOTH INFECTION
     Dosage: 300MG FOUR TIMES PER DAY
     Route: 048
  3. ACIDOPHILUS [Concomitant]

REACTIONS (3)
  - DRUG INEFFECTIVE [None]
  - DRUG INTERACTION [None]
  - GLOSSODYNIA [None]
